FAERS Safety Report 24080220 (Version 1)
Quarter: 2024Q3

REPORT INFORMATION
  Report Type: Spontaneous
  Country: GB (occurrence: None)
  Receive Date: 20240711
  Receipt Date: 20240711
  Transmission Date: 20241016
  Serious: Yes (Other)
  Sender: ASTRAZENECA
  Company Number: 2024A156917

PATIENT
  Sex: Female
  Weight: 62 kg

DRUGS (3)
  1. QUETIAPINE [Suspect]
     Active Substance: QUETIAPINE
     Indication: Panic attack
     Dosage: TAKE THEM WHEN NEEDED, I.E IF THE PATIENT WAS HAVING A PANIC ATTACK OR IF SHE WAS ON THE BRINK OF...
  2. FLUOXETINE [Concomitant]
     Active Substance: FLUOXETINE HYDROCHLORIDE
  3. LAMOTRIGINE [Concomitant]
     Active Substance: LAMOTRIGINE

REACTIONS (4)
  - Bladder pain [Not Recovered/Not Resolved]
  - Bladder spasm [Not Recovered/Not Resolved]
  - Hypertonic bladder [Not Recovered/Not Resolved]
  - Off label use [Unknown]
